FAERS Safety Report 7336211-5 (Version None)
Quarter: 2011Q1

REPORT INFORMATION
  Report Type: 
  Country: None (occurrence: None)
  Receive Date: 20110307
  Receipt Date: 20110224
  Transmission Date: 20110831
  Serious: Yes (Life-Threatening)
  Sender: FDA-Public Use
  Company Number: FR-PFIZER INC-2009198120

PATIENT
  Age: 61 Year
  Sex: Male

DRUGS (11)
  1. LYRICA [Suspect]
     Dosage: 25 MG, 2X/DAY
     Route: 048
     Dates: end: 20090218
  2. CALCIDOSE [Suspect]
     Dosage: 1 DF, 2X/DAY
     Route: 048
     Dates: start: 20090207, end: 20090218
  3. CALCIPARINE [Suspect]
     Dosage: 5000 IU/0.2ML, UNK
     Route: 058
     Dates: start: 20090211, end: 20090217
  4. DEXAMETHASONE [Concomitant]
  5. ZELITREX [Suspect]
     Dosage: 500 MG, 1X/DAY
     Route: 048
     Dates: end: 20090217
  6. TAZOCILLINE [Suspect]
     Dosage: 1 DF, 2X/DAY
     Route: 042
     Dates: start: 20090211, end: 20090223
  7. OFLOCET [Suspect]
     Dosage: 200 MG,
     Route: 042
     Dates: start: 20090211, end: 20090218
  8. INIPOMP [Suspect]
     Dosage: 1 DF, 1X/DAY
     Route: 048
     Dates: start: 20090208, end: 20090217
  9. LASIX [Suspect]
     Dosage: 20 MG, 1X/DAY
     Route: 048
     Dates: start: 20090211, end: 20090218
  10. VELCADE [Suspect]
     Dosage: 3.5 MG
     Route: 042
     Dates: start: 20090209, end: 20090216
  11. FOLIC ACID [Suspect]
     Dosage: 5 MG, 2X/DAY
     Route: 048
     Dates: start: 20090209, end: 20090218

REACTIONS (1)
  - TUMOUR LYSIS SYNDROME [None]
